FAERS Safety Report 4281606-X (Version None)
Quarter: 2004Q1

REPORT INFORMATION
  Report Type: 
  Country: None (occurrence: None)
  Receive Date: 20040123
  Receipt Date: 20030808
  Transmission Date: 20041129
  Serious: Yes (Hospitalization)
  Sender: FDA-Public Use
  Company Number: HQWYE988911AUG03

PATIENT
  Sex: Male

DRUGS (3)
  1. CORDARONE [Suspect]
     Indication: ARRHYTHMIA
     Dosage: 200 MG 2X PER 1 DAY, ORAL; SEVERAL YEARS
     Route: 048
  2. FUROSEMIDE [Concomitant]
  3. HYDOCHLOROTHIAZIDE (HYDROCHLOROTHIAZIDE) [Concomitant]

REACTIONS (2)
  - HEPATITIS [None]
  - PANCREATITIS [None]
